FAERS Safety Report 4745368-1 (Version None)
Quarter: 2005Q3

REPORT INFORMATION
  Report Type: 
  Country: None (occurrence: None)
  Receive Date: 20050815
  Receipt Date: 20050707
  Transmission Date: 20060218
  Serious: Yes (Hospitalization, Disabling)
  Sender: FDA-Public Use
  Company Number: CLOF-10039

PATIENT
  Age: 7 Year
  Sex: Male

DRUGS (6)
  1. CLOFARABINE [Suspect]
     Indication: ACUTE LYMPHOCYTIC LEUKAEMIA
     Dosage: 51 MG QD IV
     Route: 042
     Dates: start: 20050517, end: 20050626
  2. VORICONAZOLE [Concomitant]
  3. CO-TRIMOXAZOLE [Concomitant]
  4. MAGNESIUM [Concomitant]
  5. PARACETAMOL [Concomitant]
  6. DIHYDROCODEINE [Concomitant]

REACTIONS (6)
  - BLOOD CULTURE POSITIVE [None]
  - FEBRILE NEUTROPENIA [None]
  - FUNGAL INFECTION [None]
  - LUNG INFECTION [None]
  - OPPORTUNISTIC INFECTION [None]
  - STREPTOCOCCAL INFECTION [None]
